FAERS Safety Report 4512182-1 (Version None)
Quarter: 2004Q4

REPORT INFORMATION
  Report Type: 
  Country: None (occurrence: None)
  Receive Date: 20041129
  Receipt Date: 20041122
  Transmission Date: 20050328
  Serious: Yes (Other)
  Sender: FDA-Public Use
  Company Number: SE-ROCHE-386760

PATIENT
  Age: 42 Year
  Sex: Female

DRUGS (2)
  1. XENICAL [Suspect]
     Indication: DRUG USE FOR UNKNOWN INDICATION
     Dosage: DOSAGE REGIMEN: X3.
     Route: 048
     Dates: start: 20020615
  2. DESOGESTREL [Concomitant]
     Dosage: DRUG NAME: DESOLET.
     Dates: start: 20041015

REACTIONS (4)
  - GENITAL NEOPLASM MALIGNANT FEMALE [None]
  - HYPERHIDROSIS [None]
  - MELAENA [None]
  - TACHYCARDIA [None]
